FAERS Safety Report 4758678-9 (Version None)
Quarter: 2005Q3

REPORT INFORMATION
  Report Type: 
  Country: None (occurrence: None)
  Receive Date: 20050901
  Receipt Date: 20050811
  Transmission Date: 20060218
  Serious: Yes (Other)
  Sender: FDA-Public Use
  Company Number: DE-BRISTOL-MYERS SQUIBB COMPANY-13075163

PATIENT
  Age: 76 Year
  Sex: Female

DRUGS (5)
  1. VOLON-A INJ 40 MG/ML [Suspect]
     Indication: MACULAR OEDEMA
     Route: 031
     Dates: start: 20050801
  2. VOLON-A INJ 40 MG/ML [Suspect]
     Indication: DIABETIC RETINOPATHY
     Route: 031
     Dates: start: 20050801
  3. GLIBENCLAMIDE [Concomitant]
     Route: 048
  4. METFORMIN HCL [Concomitant]
  5. LEVOTHYROXINE SODIUM+POTASSIUM IODIDE [Concomitant]

REACTIONS (1)
  - ENDOPHTHALMITIS [None]
